FAERS Safety Report 17676313 (Version 3)
Quarter: 2020Q2

REPORT INFORMATION
  Report Type: Spontaneous
  Country: US (occurrence: US)
  Receive Date: 20200416
  Receipt Date: 20200524
  Transmission Date: 20200714
  Serious: No
  Sender: FDA-Public Use
  Company Number: US-SHIRE-US202013575

PATIENT
  Sex: Female

DRUGS (1)
  1. NATPARA (PARATHYROID HORMONE) [Suspect]
     Active Substance: PARATHYROID HORMONE
     Indication: PRODUCT USED FOR UNKNOWN INDICATION
     Dosage: 25 MICROGRAM, 1X/DAY:QD
     Route: 058

REACTIONS (4)
  - Product administration error [Unknown]
  - Injection site pain [Unknown]
  - Product dose omission [Recovered/Resolved]
  - Device ineffective [Unknown]

NARRATIVE: CASE EVENT DATE: 20200516
